FAERS Safety Report 5739442-0 (Version None)
Quarter: 2008Q2

REPORT INFORMATION
  Report Type: 
  Country: None (occurrence: None)
  Receive Date: 20080515
  Receipt Date: 20080505
  Transmission Date: 20081010
  Serious: Yes (Disabling, Other)
  Sender: FDA-Public Use
  Company Number: FR-PFIZER INC-2008039456

PATIENT
  Sex: Male

DRUGS (9)
  1. AMLOR [Suspect]
     Indication: ANGINA PECTORIS
     Route: 048
  2. CELESTONE [Suspect]
     Indication: BRONCHITIS
     Route: 048
     Dates: start: 20071221, end: 20071228
  3. ROXITHROMYCIN [Suspect]
     Indication: BRONCHITIS
     Route: 048
     Dates: start: 20071221, end: 20071228
  4. OXOMEMAZINE [Suspect]
     Indication: BRONCHITIS
     Route: 048
     Dates: start: 20071221, end: 20071228
  5. VALSARTAN AND HYDROCHLOROTHIAZIDE [Suspect]
     Indication: AORTIC VALVE DISEASE
     Route: 048
  6. CRESTOR [Suspect]
     Indication: BLOOD CHOLESTEROL
     Route: 048
  7. DISCOTRINE [Suspect]
     Indication: ANGINA PECTORIS
     Route: 062
  8. XATRAL [Suspect]
     Indication: DYSURIA
     Route: 048
  9. ACETYLSALICYLATE LYSINE [Suspect]
     Indication: MYOCARDIAL ISCHAEMIA
     Route: 048

REACTIONS (1)
  - TENDON RUPTURE [None]
